FAERS Safety Report 12104030 (Version 1)
Quarter: 2016Q1

REPORT INFORMATION
  Report Type: Spontaneous
  Country: US (occurrence: US)
  Receive Date: 20160223
  Receipt Date: 20160223
  Transmission Date: 20160526
  Serious: No
  Sender: FDA-Public Use
  Company Number: US-TEVA-599317USA

PATIENT
  Sex: Female

DRUGS (3)
  1. CHILDRENS ASPIRIN [Concomitant]
     Active Substance: ASPIRIN
     Dosage: 81 MILLIGRAM DAILY;
     Dates: start: 20140910
  2. DISOPYRAMIDE [Suspect]
     Active Substance: DISOPYRAMIDE
     Indication: CARDIAC DISORDER
     Dosage: 300 MILLIGRAM DAILY;
     Dates: start: 201504, end: 20150929
  3. CLOPIDOGREL [Concomitant]
     Active Substance: CLOPIDOGREL BISULFATE
     Dosage: 75 MILLIGRAM DAILY;
     Dates: start: 20140910

REACTIONS (9)
  - Adverse event [Unknown]
  - Asthma [Not Recovered/Not Resolved]
  - Tension [Unknown]
  - Tremor [Unknown]
  - Sinus disorder [Unknown]
  - Respiratory tract congestion [Unknown]
  - Upper-airway cough syndrome [Unknown]
  - Headache [Unknown]
  - Product substitution issue [Unknown]
